FAERS Safety Report 24750693 (Version 1)
Quarter: 2024Q4

REPORT INFORMATION
  Report Type: Spontaneous
  Country: AR (occurrence: AR)
  Receive Date: 20241218
  Receipt Date: 20241218
  Transmission Date: 20250115
  Serious: Yes (Hospitalization, Other)
  Sender: AMGEN
  Company Number: AR-PFIZER INC-202400324536

PATIENT
  Age: 67 Year
  Sex: Male

DRUGS (1)
  1. ENBREL [Suspect]
     Active Substance: ETANERCEPT
     Indication: Rheumatoid arthritis
     Dosage: 50 MG EVERY 10 DAYS
     Route: 065
     Dates: start: 20160601

REACTIONS (6)
  - Gallbladder rupture [Unknown]
  - Herpes zoster [Unknown]
  - Pain [Unknown]
  - Discomfort [Unknown]
  - Pruritus [Unknown]
  - Off label use [Unknown]

NARRATIVE: CASE EVENT DATE: 20160601
